FAERS Safety Report 8479194-7 (Version None)
Quarter: 2012Q2

REPORT INFORMATION
  Report Type: 
  Country: None (occurrence: None)
  Receive Date: 20120629
  Receipt Date: 20120620
  Transmission Date: 20120825
  Serious: Yes (Hospitalization)
  Sender: FDA-Public Use
  Company Number: JP-FRI-1000036641

PATIENT
  Age: 87 Year
  Sex: Female

DRUGS (5)
  1. ARICEPT [Concomitant]
  2. ASPIRIN [Concomitant]
  3. AMLODIPINE [Concomitant]
  4. MEMANTINE HCL [Suspect]
     Dosage: 5 MG
     Route: 048
     Dates: start: 20120501, end: 20120530
  5. LANSOPRAZOLE [Concomitant]

REACTIONS (2)
  - ALTERED STATE OF CONSCIOUSNESS [None]
  - BLOOD PRESSURE INCREASED [None]
